FAERS Safety Report 20206925 (Version 1)
Quarter: 2021Q4

REPORT INFORMATION
  Report Type: Other
  Country: CA (occurrence: CA)
  Receive Date: 20211220
  Receipt Date: 20211220
  Transmission Date: 20220303
  Serious: Yes (Life-Threatening)
  Sender: FDA-Public Use
  Company Number: CA-NAPPMUNDI-GBR-2021-0093426

PATIENT
  Age: 82 Year
  Sex: Female

DRUGS (1)
  1. MORPHINE SULFATE [Suspect]
     Active Substance: MORPHINE SULFATE
     Indication: Cancer pain
     Dosage: 1000 MG, UNK
     Route: 065

REACTIONS (3)
  - Seizure [Unknown]
  - Neurotoxicity [Unknown]
  - Myoclonus [Unknown]
